FAERS Safety Report 4623481-7 (Version None)
Quarter: 2005Q1

REPORT INFORMATION
  Report Type: 
  Country: None (occurrence: None)
  Receive Date: 20050330
  Receipt Date: 20050317
  Transmission Date: 20050727
  Serious: Yes (Other)
  Sender: FDA-Public Use
  Company Number: 2005-00540

PATIENT
  Sex: Female

DRUGS (1)
  1. VELCADE [Suspect]
     Dosage: INTRAVENOUS
     Route: 042

REACTIONS (1)
  - ERYTHEMA MULTIFORME [None]
